FAERS Safety Report 24575682 (Version 1)
Quarter: 2024Q4

REPORT INFORMATION
  Report Type: Spontaneous
  Country: US (occurrence: None)
  Receive Date: 20241101
  Receipt Date: 20241101
  Transmission Date: 20250114
  Serious: Yes (Hospitalization)
  Sender: Public
  Company Number: None

PATIENT
  Age: 24 Year
  Sex: Female

DRUGS (3)
  1. ESCITALOPRAM OXALATE [Suspect]
     Active Substance: ESCITALOPRAM OXALATE
     Indication: Affective disorder
     Dosage: 3.00 MG DAILY ORAL
     Route: 048
     Dates: start: 20230912, end: 20231220
  2. ESCITALOPRAM OXALATE [Suspect]
     Active Substance: ESCITALOPRAM OXALATE
     Indication: Anxiety
  3. DIPHENHYDRAMINE HYDROCHLORIDE [Suspect]
     Active Substance: DIPHENHYDRAMINE HYDROCHLORIDE
     Dates: start: 20231205, end: 20231220

REACTIONS (8)
  - Hyperhidrosis [None]
  - Fatigue [None]
  - Overdose [None]
  - Pruritus [None]
  - Rash [None]
  - Weight increased [None]
  - Suicide attempt [None]
  - Tonic convulsion [None]

NARRATIVE: CASE EVENT DATE: 20231205
